FAERS Safety Report 23860759 (Version 1)
Quarter: 2024Q2

REPORT INFORMATION
  Report Type: Spontaneous
  Country: TR (occurrence: TR)
  Receive Date: 20240516
  Receipt Date: 20240516
  Transmission Date: 20240716
  Serious: Yes (Other)
  Sender: FDA-Public Use
  Company Number: TR-TAKEDA-2024TUS047140

PATIENT
  Age: 3 Year
  Sex: Male

DRUGS (6)
  1. FEIBA NF [Suspect]
     Active Substance: ANTI-INHIBITOR COAGULANT COMPLEX
     Indication: Factor VIII deficiency
     Dosage: 4000 INTERNATIONAL UNIT, 2/WEEK
     Route: 065
  2. FEIBA NF [Suspect]
     Active Substance: ANTI-INHIBITOR COAGULANT COMPLEX
     Indication: Prophylaxis
     Dosage: 9000 INTERNATIONAL UNIT
     Route: 065
  3. METHYLPREDNISOLONE [Concomitant]
     Active Substance: METHYLPREDNISOLONE
     Indication: Factor VIII deficiency
     Dosage: UNK
     Route: 065
  4. BENEFIX [Concomitant]
     Active Substance: COAGULATION FACTOR IX RECOMBINANT HUMAN\ISOPROPYL ALCOHOL
     Indication: Prophylaxis
     Dosage: 6000 INTERNATIONAL UNIT
     Route: 065
  5. BENEFIX [Concomitant]
     Active Substance: COAGULATION FACTOR IX RECOMBINANT HUMAN\ISOPROPYL ALCOHOL
     Dosage: 3000 INTERNATIONAL UNIT, 2/WEEK
     Route: 065
  6. COAGULATION FACTOR VIIA RECOMBINANT HUMAN [Concomitant]
     Active Substance: COAGULATION FACTOR VIIA RECOMBINANT HUMAN
     Dosage: 8 MILLIGRAM, Q8HR
     Route: 065

REACTIONS (3)
  - Anti factor VIII antibody positive [Unknown]
  - Drug ineffective [Unknown]
  - Anti factor IX antibody positive [Unknown]
